FAERS Safety Report 18269103 (Version 1)
Quarter: 2020Q3

REPORT INFORMATION
  Report Type: Spontaneous
  Country: US (occurrence: US)
  Receive Date: 20200915
  Receipt Date: 20200915
  Transmission Date: 20201103
  Serious: No
  Sender: FDA-Public Use
  Company Number: US-ELI_LILLY_AND_COMPANY-US202008008282

PATIENT
  Sex: Male

DRUGS (3)
  1. HUMALOG [Suspect]
     Active Substance: INSULIN LISPRO
     Indication: TYPE 1 DIABETES MELLITUS
     Dosage: 1 DOSAGE FORM, UNKNOWN
     Route: 065
  2. NOVOLOG [Suspect]
     Active Substance: INSULIN ASPART
     Indication: TYPE 1 DIABETES MELLITUS
     Dosage: 1 DOSAGE FORM, UNKNOWN
     Route: 065
  3. GLUCAGON. [Suspect]
     Active Substance: GLUCAGON
     Indication: BLOOD GLUCOSE DECREASED
     Dosage: 1 DOSAGE FORM, UNKNOWN
     Route: 030

REACTIONS (3)
  - Hypoglycaemia [Unknown]
  - Blood glucose decreased [Unknown]
  - Wrong technique in product usage process [Unknown]
